FAERS Safety Report 6214710-7 (Version None)
Quarter: 2009Q2

REPORT INFORMATION
  Report Type: 
  Country: None (occurrence: None)
  Receive Date: 20090604
  Receipt Date: 20090601
  Transmission Date: 20091009
  Serious: Yes (Life-Threatening)
  Sender: FDA-Public Use
  Company Number: JP-EISAI INC.-E2090-00688-SPO-JP

PATIENT
  Sex: Female

DRUGS (6)
  1. EXCEGRAN [Suspect]
     Indication: CONVULSION PROPHYLAXIS
     Route: 048
     Dates: start: 20081227, end: 20090127
  2. MEIACT [Concomitant]
     Route: 048
     Dates: start: 20090111, end: 20090118
  3. CEFAMEZIN ALPHA [Concomitant]
     Dates: start: 20081226, end: 20081230
  4. CEFAMEZIN ALPHA [Concomitant]
  5. ZOVIRAX [Concomitant]
     Dates: start: 20081226, end: 20081230
  6. ZOVIRAX [Concomitant]

REACTIONS (1)
  - LIVER DISORDER [None]
